FAERS Safety Report 16854022 (Version 1)
Quarter: 2019Q3

REPORT INFORMATION
  Report Type: Spontaneous
  Country: JP (occurrence: JP)
  Receive Date: 20190926
  Receipt Date: 20190926
  Transmission Date: 20191005
  Serious: Yes (Other)
  Sender: FDA-Public Use
  Company Number: JP-AMGEN-JPNSP2019083516

PATIENT
  Age: 76 Year
  Sex: Female

DRUGS (12)
  1. LIVALO [Concomitant]
     Active Substance: PITAVASTATIN CALCIUM
     Dosage: 1 MG
     Route: 065
  2. ASPARA POTASSIUM [Concomitant]
     Active Substance: POTASSIUM ASPARTATE
     Dosage: 200 MILLIGRAM, QID
     Route: 065
  3. CALFINA [Concomitant]
     Active Substance: ALFACALCIDOL
     Dosage: 0.5 MG, BID
     Route: 065
  4. GLAKAY [Concomitant]
     Active Substance: MENATETRENONE
     Dosage: 15 MILLIGRAM, TID
     Route: 065
  5. PRALIA [Suspect]
     Active Substance: DENOSUMAB
     Indication: OSTEOPOROSIS
     Dosage: 60 MILLIGRAM, Q6MO
     Route: 023
     Dates: start: 20131001, end: 20151001
  6. RHEUMATREX [Concomitant]
     Active Substance: METHOTREXATE SODIUM
     Dosage: 6 MILLIGRAM
     Route: 065
  7. LIVALO [Concomitant]
     Active Substance: PITAVASTATIN CALCIUM
     Dosage: 1 MILLIGRAM
     Route: 065
  8. GLAKAY [Concomitant]
     Active Substance: MENATETRENONE
     Dosage: 15 MG, TID
     Route: 065
  9. FOLIAMIN [Concomitant]
     Active Substance: FOLIC ACID
     Dosage: UNK
     Route: 065
  10. ASPARA POTASSIUM [Concomitant]
     Active Substance: POTASSIUM ASPARTATE
     Dosage: 200 MG, QID
     Route: 065
  11. CALFINA [Concomitant]
     Active Substance: ALFACALCIDOL
     Dosage: 0.5 MILLIGRAM, BID
     Route: 065
  12. ENBREL [Concomitant]
     Active Substance: ETANERCEPT
     Dosage: UNK
     Route: 023

REACTIONS (1)
  - Spinal compression fracture [Recovered/Resolved]

NARRATIVE: CASE EVENT DATE: 20160615
